FAERS Safety Report 8177363-7 (Version None)
Quarter: 2012Q1

REPORT INFORMATION
  Report Type: 
  Country: None (occurrence: None)
  Receive Date: 20120301
  Receipt Date: 20120222
  Transmission Date: 20120608
  Serious: Yes (Hospitalization, Other)
  Sender: FDA-Public Use
  Company Number: US-BAYER-2011-086462

PATIENT
  Age: 38 Year
  Sex: Female
  Weight: 66 kg

DRUGS (8)
  1. MOTRIN [Concomitant]
     Route: 048
  2. YAZ [Suspect]
  3. YAZ [Suspect]
     Indication: CONTRACEPTION
     Dosage: UNK
     Route: 048
     Dates: start: 20070601, end: 20091001
  4. YAZ [Suspect]
  5. LEVAQUIN [Concomitant]
     Route: 048
  6. DELSYM [Concomitant]
     Route: 048
  7. YAZ [Suspect]
  8. ACETYLSALICYLIC ACID SRT [Concomitant]
     Route: 048

REACTIONS (4)
  - INJURY [None]
  - MENTAL DISORDER [None]
  - PAIN [None]
  - PULMONARY EMBOLISM [None]
